FAERS Safety Report 6069498-X (Version None)
Quarter: 2009Q1

REPORT INFORMATION
  Report Type: 
  Country: None (occurrence: None)
  Receive Date: 20090206
  Receipt Date: 20090123
  Transmission Date: 20090719
  Serious: Yes (Hospitalization)
  Sender: FDA-Public Use
  Company Number: TH-GENENTECH-276397

PATIENT
  Sex: Female

DRUGS (5)
  1. BLINDED PLACEBO [Suspect]
     Indication: BREAST CANCER METASTATIC
     Dosage: UNK, QD
     Route: 042
     Dates: start: 20080924
  2. BLINDED PERTUZUMAB [Suspect]
     Indication: BREAST CANCER METASTATIC
     Dosage: UNK, QD
     Route: 042
     Dates: start: 20080924
  3. TRASTUZUMAB [Suspect]
     Indication: BREAST CANCER METASTATIC
     Dosage: 8 MG/KG, UNK
     Route: 042
     Dates: start: 20080924
  4. TRASTUZUMAB [Suspect]
     Dosage: 240 MG, QD
     Route: 042
  5. DOCETAXEL [Suspect]
     Indication: BREAST CANCER METASTATIC
     Dosage: 100 MG, QD
     Route: 042
     Dates: start: 20080924

REACTIONS (1)
  - PNEUMONIA [None]
